FAERS Safety Report 5335781-6 (Version None)
Quarter: 2007Q2

REPORT INFORMATION
  Report Type: 
  Country: None (occurrence: None)
  Receive Date: 20070322
  Receipt Date: 20070201
  Transmission Date: 20071010
  Serious: No
  Sender: FDA-Public Use
  Company Number: 2007US000297

PATIENT
  Age: 36 Year
  Sex: Female

DRUGS (2)
  1. VESICARE [Suspect]
     Indication: AUTOMATIC BLADDER
     Dosage: 5 MG, ORAL
     Route: 048
     Dates: start: 20070123, end: 20070201
  2. OTC MULTIVITAMIN (VITAMINS NOS) [Concomitant]

REACTIONS (2)
  - DRY MOUTH [None]
  - PHARYNGOLARYNGEAL PAIN [None]
